FAERS Safety Report 7783302-0 (Version None)
Quarter: 2011Q3

REPORT INFORMATION
  Report Type: 
  Country: None (occurrence: None)
  Receive Date: 20110928
  Receipt Date: 20110919
  Transmission Date: 20111222
  Serious: Yes (Other)
  Sender: FDA-Public Use
  Company Number: US-BAYER-2011-004979

PATIENT
  Age: 26 Year
  Sex: Female
  Weight: 72.562 kg

DRUGS (14)
  1. CLINDAMYCIN [Concomitant]
     Dosage: UNK
     Dates: start: 20010801
  2. DROSPIRENONE AND ETHINYL ESTRADIOL [Suspect]
  3. ZITHROMAX [Concomitant]
     Dosage: UNK
     Dates: start: 20010801
  4. AMOXICILLIN [Concomitant]
     Dosage: UNK
     Dates: start: 20010801
  5. PROPOXYPHENE HYDROCHLORIDE [Concomitant]
     Dosage: UNK
     Dates: start: 20010801
  6. CHLORHEXIDINE GLUCONATE [Concomitant]
     Dosage: UNK
     Dates: start: 20010801
  7. PENICILLIN [Concomitant]
     Dosage: UNK
     Dates: start: 20010801
  8. ERYTHROMYCIN [Concomitant]
     Dosage: UNK
     Dates: start: 20010801
  9. SULFACETAMIDE SODIUM [Concomitant]
     Dosage: UNK
     Dates: start: 20010801
  10. PROCHLORPERAZINE [Concomitant]
     Dosage: UNK
     Dates: start: 20010801
  11. YASMIN [Suspect]
     Dosage: UNK
     Dates: start: 20010821, end: 20020701
  12. YAZ [Suspect]
     Dosage: UNK
     Dates: start: 20010821, end: 20020701
  13. PREVACID [Concomitant]
     Dosage: UNK
     Dates: start: 20011208
  14. TOBRADEX [Concomitant]
     Dosage: UNK
     Dates: start: 20010801

REACTIONS (5)
  - INJURY [None]
  - EMOTIONAL DISTRESS [None]
  - PAIN [None]
  - GALLBLADDER DISORDER [None]
  - CHOLELITHIASIS [None]
